FAERS Safety Report 9155790 (Version 2)
Quarter: 2013Q2

REPORT INFORMATION
  Report Type: Report from Study
  Country: DE (occurrence: DE)
  Receive Date: 20130311
  Receipt Date: 20130617
  Transmission Date: 20140414
  Serious: Yes (Hospitalization)
  Sender: FDA-Public Use
  Company Number: DE-UCBSA-080255

PATIENT
  Sex: Male

DRUGS (5)
  1. VIMPAT [Suspect]
     Indication: EPILEPSY
     Dosage: 400MG DAILY
     Dates: end: 20100423
  2. VIMPAT [Suspect]
     Indication: EPILEPSY
     Dosage: 50MG DAILY
     Dates: start: 20090711
  3. LAMOTRIGINE [Concomitant]
     Indication: EPILEPSY
     Dosage: 200 MG/DAY
  4. PHENOBARBITONE [Concomitant]
     Indication: EPILEPSY
     Dosage: 750 MG/DAY
  5. LEVETIRACETAM [Concomitant]
     Indication: EPILEPSY
     Dosage: 3000MG/ DAY

REACTIONS (2)
  - Status epilepticus [Unknown]
  - Convulsion [Unknown]
